FAERS Safety Report 19885730 (Version 1)
Quarter: 2021Q3

REPORT INFORMATION
  Report Type: Spontaneous
  Country: US (occurrence: US)
  Receive Date: 20210927
  Receipt Date: 20210927
  Transmission Date: 20211014
  Serious: Yes (Other)
  Sender: FDA-Public Use
  Company Number: US-VALIDUS PHARMACEUTICALS LLC-US-VDP-2021-002233

PATIENT
  Sex: Female

DRUGS (12)
  1. LABETALOL [Suspect]
     Active Substance: LABETALOL\LABETALOL HYDROCHLORIDE
     Dosage: UNK (IV)
  2. LABETALOL [Suspect]
     Active Substance: LABETALOL\LABETALOL HYDROCHLORIDE
     Dosage: 300 MG, BID
  3. LEVEMIR [Suspect]
     Active Substance: INSULIN DETEMIR
     Indication: TYPE 1 DIABETES MELLITUS
     Dosage: 15 UNIT (MORNING)
  4. MISOPROSTOL. [Suspect]
     Active Substance: MISOPROSTOL
     Indication: CERVICAL DILATATION
     Dosage: UNK
     Route: 064
  5. NIFEDIPINE. [Suspect]
     Active Substance: NIFEDIPINE
     Indication: HYPERTENSION
     Dosage: 600 MG, QD
     Route: 064
  6. INSULIN LISPRO [Suspect]
     Active Substance: INSULIN LISPRO
     Indication: TYPE 1 DIABETES MELLITUS
     Dosage: UNK (6 UNITS WITH BREAKFAST, 7 UNITS WITH LUNCH AND 20 UNITS WITH DINNER)
     Route: 064
  7. LEVEMIR [Suspect]
     Active Substance: INSULIN DETEMIR
     Dosage: 20 UNIT (AFTERNOON)
  8. MISOPROSTOL. [Suspect]
     Active Substance: MISOPROSTOL
     Indication: LABOUR INDUCTION
  9. ASPIRIN [ACETYLSALICYLIC ACID] [Suspect]
     Active Substance: ASPIRIN
     Indication: PRE-ECLAMPSIA
     Dosage: 81 MG, QD AROUND 12 WEEKS OF GESTATION
     Route: 064
  10. FUROSEMIDE. [Suspect]
     Active Substance: FUROSEMIDE
     Indication: HYPERTENSION
     Dosage: 80 MG, BID
     Route: 064
  11. MAGNESIUM SULFATE. [Suspect]
     Active Substance: MAGNESIUM SULFATE
     Indication: LABOUR INDUCTION
     Dosage: UNK
  12. LABETALOL [Suspect]
     Active Substance: LABETALOL\LABETALOL HYDROCHLORIDE
     Indication: HYPERTENSION
     Dosage: 200 MG, BID (AT THE BEGINNING OF PREGNANCY)
     Route: 064

REACTIONS (3)
  - Foetal heart rate deceleration abnormality [Recovered/Resolved]
  - Foetal exposure during pregnancy [Unknown]
  - Off label use [Recovered/Resolved]
